FAERS Safety Report 5511594-7 (Version None)
Quarter: 2007Q4

REPORT INFORMATION
  Report Type: 
  Country: None (occurrence: None)
  Receive Date: 20071109
  Receipt Date: 20071030
  Transmission Date: 20080405
  Serious: Yes (Hospitalization, Disabling, Other)
  Sender: FDA-Public Use
  Company Number: NO-WYE-G00550207

PATIENT
  Sex: Male

DRUGS (8)
  1. EFFEXOR [Suspect]
     Indication: DEPRESSION
     Dosage: UNKNOWN
     Route: 048
     Dates: start: 19980101, end: 19980101
  2. NEFADAR [Concomitant]
     Indication: DEPRESSION
     Dosage: UNKNOWN
     Dates: start: 19980101
  3. ROHYPNOL [Concomitant]
     Dosage: UNK
     Dates: start: 19980101
  4. SEROXAT [Suspect]
     Indication: DEPRESSION
     Dosage: UNKOWN
     Route: 048
     Dates: end: 19980501
  5. NOZINAN [Suspect]
  6. IMOVANE [Suspect]
  7. ZOLOFT [Suspect]
     Indication: DEPRESSION
     Dosage: UNKNOWN
     Route: 048
     Dates: start: 19980101
  8. MELLARIL [Suspect]
     Indication: INSOMNIA
     Dosage: UNKNOWN
     Dates: start: 19980101

REACTIONS (29)
  - ABDOMINAL PAIN [None]
  - ANXIETY [None]
  - BALANCE DISORDER [None]
  - CARDIOVASCULAR DISORDER [None]
  - CHEST DISCOMFORT [None]
  - CHEST PAIN [None]
  - CHRONIC FATIGUE SYNDROME [None]
  - CONDITION AGGRAVATED [None]
  - DECREASED APPETITE [None]
  - DEPRESSION [None]
  - DISABILITY [None]
  - DIZZINESS [None]
  - ERECTILE DYSFUNCTION [None]
  - FACIAL PALSY [None]
  - FATIGUE [None]
  - FEAR OF DISEASE [None]
  - HALLUCINATION, AUDITORY [None]
  - HEADACHE [None]
  - HEART RATE DECREASED [None]
  - HYPOTENSION [None]
  - INSOMNIA [None]
  - MUSCULOSKELETAL STIFFNESS [None]
  - PHOTOSENSITIVITY REACTION [None]
  - SLEEP DISORDER [None]
  - SOCIAL PHOBIA [None]
  - SOMATISATION DISORDER [None]
  - SYNCOPE [None]
  - TINNITUS [None]
  - WEIGHT DECREASED [None]
